FAERS Safety Report 5805800-9 (Version None)
Quarter: 2008Q3

REPORT INFORMATION
  Report Type: 
  Country: None (occurrence: None)
  Receive Date: 20080708
  Receipt Date: 20080708
  Transmission Date: 20090109
  Serious: Yes (Life-Threatening, Disabling, Other)
  Sender: FDA-Public Use
  Company Number: None

PATIENT
  Age: 72 Year
  Sex: Female
  Weight: 90.7194 kg

DRUGS (1)
  1. BYETTA [Suspect]
     Indication: TYPE 2 DIABETES MELLITUS
     Dosage: 5 AND 10MCG BID AC INJ
     Dates: start: 20060725, end: 20070215

REACTIONS (4)
  - ABDOMINAL PAIN [None]
  - ANXIETY [None]
  - PAIN [None]
  - PANCREATIC CYST [None]
